FAERS Safety Report 6521576 (Version 1)
Quarter: 2020Q3

REPORT INFORMATION
  Report Type: Spontaneous
  Country: NL (occurrence: NL)
  Receive Date: 20080108
  Receipt Date: 20080108
  Transmission Date: 20201105
  Serious: Yes (Other)
  Sender: FDA-Public Use
  Company Number: NL-ROCHE-539441

PATIENT
  Age: 61 Year
  Sex: Female

DRUGS (8)
  1. IBANDRONIC ACID. [Suspect]
     Active Substance: IBANDRONIC ACID
     Indication: PRODUCT USED FOR UNKNOWN INDICATION
     Route: 065
     Dates: start: 2005, end: 2007
  2. CALCIUM CARBONATE. [Concomitant]
     Active Substance: CALCIUM CARBONATE
     Dosage: DRUG NAME: VITAMIN D
  3. ESTRADIOL. [Concomitant]
     Active Substance: ESTRADIOL
     Dosage: DRUG NAME: ESTRADIOL/ DYDROGESTRON
  4. TEMAZEPAM. [Concomitant]
     Active Substance: TEMAZEPAM
  5. ACENOCOUMAROL [Concomitant]
     Active Substance: ACENOCOUMAROL
  6. DIGOXINE [Concomitant]
     Active Substance: DIGOXIN
  7. DICLOFENAC [Concomitant]
     Active Substance: DICLOFENAC
  8. LEVOCETIRIZINE [Concomitant]
     Active Substance: LEVOCETIRIZINE

REACTIONS (1)
  - Osteonecrosis [Unknown]

NARRATIVE: CASE EVENT DATE: 20070501
